FAERS Safety Report 6203260-X (Version None)
Quarter: 2009Q2

REPORT INFORMATION
  Report Type: 
  Country: None (occurrence: None)
  Receive Date: 20090522
  Receipt Date: 20090522
  Transmission Date: 20091009
  Serious: Yes (Hospitalization)
  Sender: FDA-Public Use
  Company Number: None

PATIENT

DRUGS (3)
  1. ASPIRIN [Suspect]
     Indication: ATRIAL FIBRILLATION
     Dosage: 81 MG EVERY DAY PO
     Route: 048
     Dates: start: 20081208, end: 20090512
  2. ASPIRIN [Suspect]
     Indication: CARDIAC FAILURE CONGESTIVE
     Dosage: 81 MG EVERY DAY PO
     Route: 048
     Dates: start: 20081208, end: 20090512
  3. ASPIRIN [Suspect]
     Indication: DIABETES MELLITUS
     Dosage: 81 MG EVERY DAY PO
     Route: 048
     Dates: start: 20081208, end: 20090512

REACTIONS (5)
  - ACUTE MYOCARDIAL INFARCTION [None]
  - ANAEMIA [None]
  - CARDIAC FAILURE CONGESTIVE [None]
  - GASTROENTERITIS [None]
  - HAEMORRHAGE [None]
